FAERS Safety Report 20813171 (Version 1)
Quarter: 2022Q2

REPORT INFORMATION
  Report Type: Spontaneous
  Country: US (occurrence: US)
  Receive Date: 20220511
  Receipt Date: 20220511
  Transmission Date: 20220720
  Serious: Yes (Hospitalization, Other)
  Sender: FDA-Public Use
  Company Number: US-STRIDES ARCOLAB LIMITED-2022SP005179

PATIENT
  Age: 61 Year
  Sex: Male

DRUGS (4)
  1. PREDNISOLONE [Suspect]
     Active Substance: PREDNISOLONE
     Indication: B-cell small lymphocytic lymphoma
     Dosage: UNK
     Route: 048
  2. PREDNISOLONE [Suspect]
     Active Substance: PREDNISOLONE
     Indication: Hypercalcaemia
  3. OFATUMUMAB [Suspect]
     Active Substance: OFATUMUMAB
     Indication: B-cell small lymphocytic lymphoma
     Dosage: UNK
     Route: 065
  4. IBRUTINIB [Suspect]
     Active Substance: IBRUTINIB
     Indication: B-cell small lymphocytic lymphoma
     Dosage: UNK
     Route: 065

REACTIONS (5)
  - Lymphopenia [Unknown]
  - Hypogammaglobulinaemia [Unknown]
  - Pneumocystis jirovecii pneumonia [Unknown]
  - Respiratory tract infection [Unknown]
  - Off label use [Unknown]
